FAERS Safety Report 10526900 (Version 44)
Quarter: 2021Q3

REPORT INFORMATION
  Report Type: Other
  Country: CA (occurrence: CA)
  Receive Date: 20141020
  Receipt Date: 20210908
  Transmission Date: 20211014
  Serious: Yes (Other)
  Sender: FDA-Public Use
  Company Number: CA-ROCHE-1341517

PATIENT
  Age: 75 Year
  Sex: Male
  Weight: 69 kg

DRUGS (10)
  1. NORVASC [Concomitant]
     Active Substance: AMLODIPINE BESYLATE
  2. FOLIC ACID. [Concomitant]
     Active Substance: FOLIC ACID
  3. ROSUVASTATIN. [Concomitant]
     Active Substance: ROSUVASTATIN
  4. OXYCODONE [Concomitant]
     Active Substance: OXYCODONE
  5. BABY ASPIRIN [Concomitant]
     Active Substance: ASPIRIN
  6. FOSINOPRIL [Concomitant]
     Active Substance: FOSINOPRIL
  7. PANTOPRAZOLE [Concomitant]
     Active Substance: PANTOPRAZOLE
  8. AMLODIPINE [Concomitant]
     Active Substance: AMLODIPINE BESYLATE
  9. ACTEMRA [Suspect]
     Active Substance: TOCILIZUMAB
     Indication: RHEUMATOID ARTHRITIS
     Route: 042
     Dates: start: 20140110
  10. DICLOFENAC [Concomitant]
     Active Substance: DICLOFENAC

REACTIONS (25)
  - Prostatic mass [Not Recovered/Not Resolved]
  - Blood pressure systolic abnormal [Unknown]
  - Haemorrhage [Unknown]
  - Arthralgia [Unknown]
  - Body temperature decreased [Unknown]
  - Hypotension [Unknown]
  - Rheumatoid arthritis [Not Recovered/Not Resolved]
  - Blood pressure systolic increased [Unknown]
  - Off label use [Unknown]
  - Oropharyngeal pain [Recovered/Resolved]
  - Contusion [Unknown]
  - Infusion related reaction [Unknown]
  - Weight decreased [Not Recovered/Not Resolved]
  - Heart rate decreased [Unknown]
  - Osteoarthritis [Not Recovered/Not Resolved]
  - Neck pain [Unknown]
  - Oxygen saturation decreased [Unknown]
  - Blood pressure increased [Unknown]
  - Influenza [Not Recovered/Not Resolved]
  - Nasopharyngitis [Not Recovered/Not Resolved]
  - Blood pressure diastolic abnormal [Unknown]
  - Localised infection [Recovered/Resolved]
  - Prostate cancer [Unknown]
  - Hernia [Unknown]
  - Weight increased [Recovering/Resolving]

NARRATIVE: CASE EVENT DATE: 201407
